FAERS Safety Report 20900087 (Version 1)
Quarter: 2022Q2

REPORT INFORMATION
  Report Type: Spontaneous
  Country: PT (occurrence: PT)
  Receive Date: 20220601
  Receipt Date: 20220601
  Transmission Date: 20220721
  Serious: Yes (Other)
  Sender: FDA-Public Use
  Company Number: PT-NOVARTISPH-NVSC2022PT124734

PATIENT
  Age: 73 Year
  Sex: Female

DRUGS (14)
  1. RIBOCICLIB [Suspect]
     Active Substance: RIBOCICLIB
     Indication: Lymphadenitis
     Dosage: 600 MG
     Route: 065
     Dates: start: 20210923, end: 20211011
  2. RIBOCICLIB [Suspect]
     Active Substance: RIBOCICLIB
     Indication: Hormone receptor positive breast cancer
  3. LETROZOLE [Suspect]
     Active Substance: LETROZOLE
     Indication: Lymphadenitis
     Dosage: 2.5 MG, QD
     Route: 065
     Dates: start: 20210923
  4. LETROZOLE [Suspect]
     Active Substance: LETROZOLE
     Indication: Hormone receptor positive breast cancer
  5. PAROXETINE [Suspect]
     Active Substance: PAROXETINE
     Indication: Product used for unknown indication
     Dosage: 20 MG
     Route: 065
  6. ALPRAZOLAM [Suspect]
     Active Substance: ALPRAZOLAM
     Indication: Product used for unknown indication
     Dosage: 0.5 MG
     Route: 065
  7. PANTOPRAZOLE [Suspect]
     Active Substance: PANTOPRAZOLE
     Indication: Product used for unknown indication
     Dosage: 40 MG
     Route: 065
  8. SUCRALFATE [Concomitant]
     Active Substance: SUCRALFATE
     Indication: Product used for unknown indication
     Dosage: 1000 MG / 5 ML
     Route: 065
  9. FENTANYL [Concomitant]
     Active Substance: FENTANYL
     Indication: Product used for unknown indication
     Dosage: 37 MCG/H
     Route: 062
  10. FENTANYL [Concomitant]
     Active Substance: FENTANYL
     Indication: Product used for unknown indication
     Dosage: 100 MCG
     Route: 060
  11. ZOLEDRONIC ACID [Concomitant]
     Active Substance: ZOLEDRONIC ACID
     Indication: Lymphadenitis
     Dosage: 4 MG (MONTHLY)
     Route: 042
     Dates: start: 20210923
  12. ZOLEDRONIC ACID [Concomitant]
     Active Substance: ZOLEDRONIC ACID
     Indication: Hormone receptor positive breast cancer
  13. PALBOCICLIB [Concomitant]
     Active Substance: PALBOCICLIB
     Indication: Lymphadenitis
     Dosage: 125 MG, QD (21 DAYS)
     Route: 065
  14. PALBOCICLIB [Concomitant]
     Active Substance: PALBOCICLIB
     Indication: Hormone receptor positive breast cancer

REACTIONS (7)
  - Metastases to bone [Unknown]
  - Vomiting [Recovered/Resolved]
  - Nausea [Recovered/Resolved]
  - Abdominal pain [Unknown]
  - Neck pain [Not Recovered/Not Resolved]
  - Pain [Recovering/Resolving]
  - Product use in unapproved indication [Unknown]

NARRATIVE: CASE EVENT DATE: 20211005
